FAERS Safety Report 23462463 (Version 2)
Quarter: 2024Q1

REPORT INFORMATION
  Report Type: Spontaneous
  Country: US (occurrence: US)
  Receive Date: 20240131
  Receipt Date: 20240207
  Transmission Date: 20240410
  Serious: Yes (Other)
  Sender: FDA-Public Use
  Company Number: US-BRISTOL-MYERS SQUIBB COMPANY-2024-015885

PATIENT
  Age: 67 Year
  Sex: Male

DRUGS (4)
  1. LENALIDOMIDE [Suspect]
     Active Substance: LENALIDOMIDE
     Indication: Plasma cell myeloma in remission
  2. LENALIDOMIDE [Suspect]
     Active Substance: LENALIDOMIDE
     Route: 048
  3. IBUPROFEN [Suspect]
     Active Substance: IBUPROFEN
     Indication: Product used for unknown indication
  4. ASPIRIN [Concomitant]
     Active Substance: ASPIRIN

REACTIONS (8)
  - Neuropathy peripheral [Not Recovered/Not Resolved]
  - Platelet count decreased [Unknown]
  - Weight fluctuation [Unknown]
  - Haemorrhoids [Unknown]
  - Wheezing [Unknown]
  - Constipation [Not Recovered/Not Resolved]
  - Abdominal pain [Unknown]
  - Fatigue [Unknown]
